FAERS Safety Report 25315305 (Version 2)
Quarter: 2025Q2

REPORT INFORMATION
  Report Type: Spontaneous
  Country: US (occurrence: US)
  Receive Date: 20250514
  Receipt Date: 20250527
  Transmission Date: 20250717
  Serious: Yes (Hospitalization, Other)
  Sender: SLATE RUN
  Company Number: US-SLATERUN-2025SRLIT00055

PATIENT
  Age: 29 Year
  Sex: Female

DRUGS (1)
  1. BUPROPION [Suspect]
     Active Substance: BUPROPION
     Indication: Depression
     Route: 065

REACTIONS (4)
  - Acute respiratory distress syndrome [Recovering/Resolving]
  - Pulmonary oedema [Recovering/Resolving]
  - Cytokine storm [Recovering/Resolving]
  - Intentional overdose [Unknown]
